FAERS Safety Report 9183150 (Version 1)
Quarter: 2012Q4

REPORT INFORMATION
  Report Type: 
  Country: US (occurrence: US)
  Receive Date: 20121030
  Receipt Date: 20121030
  Transmission Date: 20130627
  Serious: Yes (Other)
  Sender: FDA-Public Use
  Company Number: PHEH2012US020989

PATIENT
  Sex: Male

DRUGS (1)
  1. EXFORGE HCT [Suspect]
     Dosage: 1 DF (320/10/25 mg), QD
     Route: 048

REACTIONS (6)
  - Cataract [Not Recovered/Not Resolved]
  - Impaired healing [Not Recovered/Not Resolved]
  - Diabetic eye disease [Not Recovered/Not Resolved]
  - Retinal scar [Not Recovered/Not Resolved]
  - Visual impairment [Not Recovered/Not Resolved]
  - Metamorphopsia [Not Recovered/Not Resolved]
